FAERS Safety Report 24701460 (Version 1)
Quarter: 2024Q4

REPORT INFORMATION
  Report Type: Spontaneous
  Country: NL (occurrence: NL)
  Receive Date: 20241205
  Receipt Date: 20241205
  Transmission Date: 20250114
  Serious: Yes (Other)
  Sender: MYLAN
  Company Number: None

PATIENT
  Age: 56 Year
  Sex: Male
  Weight: 109 kg

DRUGS (1)
  1. METOPROLOL [Suspect]
     Active Substance: METOPROLOL
     Indication: Arrhythmia
     Dosage: 50 MILLIGRAM, QD (1DD1T)
     Route: 048
     Dates: start: 20240101

REACTIONS (2)
  - Erectile dysfunction [Recovered/Resolved]
  - Libido decreased [Recovered/Resolved]
